FAERS Safety Report 8328453-7 (Version None)
Quarter: 2012Q2

REPORT INFORMATION
  Report Type: 
  Country: None (occurrence: None)
  Receive Date: 20120502
  Receipt Date: 20120502
  Transmission Date: 20120825
  Serious: Yes (Other)
  Sender: FDA-Public Use
  Company Number: None

PATIENT
  Age: 53 Year
  Sex: Male
  Weight: 74.842 kg

DRUGS (1)
  1. COPAXONE [Suspect]
     Indication: MULTIPLE SCLEROSIS
     Dosage: |DOSAGETEXT: 1ML||STRENGTH: 20MG/1ML||FREQ: DAILY||ROUTE: SUBCUTANEOUS|
     Route: 058
     Dates: start: 20100401

REACTIONS (1)
  - HERPES ZOSTER [None]
